FAERS Safety Report 6292205-2 (Version None)
Quarter: 2009Q3

REPORT INFORMATION
  Report Type: 
  Country: None (occurrence: None)
  Receive Date: 20090731
  Receipt Date: 20090717
  Transmission Date: 20100115
  Serious: Yes (Hospitalization)
  Sender: FDA-Public Use
  Company Number: DK-RANBAXY-2009RR-22977

PATIENT
  Sex: Male
  Weight: 80 kg

DRUGS (3)
  1. SIMVASTATIN [Suspect]
     Indication: PROPHYLAXIS
     Dosage: 40 MG, UNK
     Dates: start: 20090201, end: 20090213
  2. ASASANTIN RETARD [Suspect]
     Indication: THROMBOSIS PROPHYLAXIS
     Dosage: UNK
     Route: 048
     Dates: start: 20090201
  3. DICILLIN [Concomitant]
     Dosage: 500 MG, UNK
     Route: 048
     Dates: start: 20090201

REACTIONS (2)
  - GOUTY ARTHRITIS [None]
  - MYALGIA [None]
